FAERS Safety Report 12610992 (Version 2)
Quarter: 2016Q3

REPORT INFORMATION
  Report Type: Spontaneous
  Country: US (occurrence: US)
  Receive Date: 20160801
  Receipt Date: 20160818
  Transmission Date: 20161109
  Serious: No
  Sender: FDA-Public Use
  Company Number: US-PFIZER INC-2016366447

PATIENT
  Age: 71 Year
  Sex: Male

DRUGS (5)
  1. ZYVOX [Concomitant]
     Active Substance: LINEZOLID
     Indication: NOCARDIOSIS
     Dosage: 600 MG, 2X/DAY (EVERY 12 HOURS)
     Route: 048
     Dates: start: 201607
  2. ZYVOX [Concomitant]
     Active Substance: LINEZOLID
     Indication: BRAIN ABSCESS
  3. INVANZ [Suspect]
     Active Substance: ERTAPENEM SODIUM
     Dosage: 1 G, DAILY
     Route: 042
  4. KEPPRA [Concomitant]
     Active Substance: LEVETIRACETAM
     Indication: SEIZURE
     Dosage: UNK
  5. ZOSYN [Suspect]
     Active Substance: PIPERACILLIN SODIUM\TAZOBACTAM SODIUM
     Indication: BACTERIAL INFECTION
     Dosage: 3.375 MG, 3X/DAY (EVERY 8 HOURS)
     Route: 042

REACTIONS (2)
  - Drug ineffective for unapproved indication [Unknown]
  - Drug resistance [Unknown]
